FAERS Safety Report 11410318 (Version 1)
Quarter: 2015Q3

REPORT INFORMATION
  Report Type: Spontaneous
  Country: US (occurrence: None)
  Receive Date: 20150820
  Receipt Date: 20150820
  Transmission Date: 20151125
  Serious: Yes (Hospitalization)
  Sender: FDA-Public Use
  Company Number: None

PATIENT
  Age: 75 Year
  Sex: Female
  Weight: 51.26 kg

DRUGS (14)
  1. INSULIN GLARGINE [Concomitant]
     Active Substance: INSULIN GLARGINE
  2. DILTIAZEM [Concomitant]
     Active Substance: DILTIAZEM
  3. WARFARIN [Concomitant]
     Active Substance: WARFARIN
  4. BUMETANIDE. [Concomitant]
     Active Substance: BUMETANIDE
  5. ACETAMINOPHEN. [Concomitant]
     Active Substance: ACETAMINOPHEN
  6. MS SR [Concomitant]
  7. FAMOTIDINE. [Concomitant]
     Active Substance: FAMOTIDINE
  8. GABAPENTIN. [Concomitant]
     Active Substance: GABAPENTIN
  9. GUAIFENESIN. [Concomitant]
     Active Substance: GUAIFENESIN
  10. CA CITRATE/VIT D [Concomitant]
  11. VITAMIN D [Concomitant]
     Active Substance: CHOLECALCIFEROL
  12. METHYPREDNISOLONE [Concomitant]
     Active Substance: METHYLPREDNISOLONE
  13. PROLIA [Suspect]
     Active Substance: DENOSUMAB
     Indication: OSTEOPOROSIS
     Route: 058
     Dates: start: 20150812
  14. METFORMIN [Concomitant]
     Active Substance: METFORMIN HYDROCHLORIDE

REACTIONS (10)
  - Urinary tract infection [None]
  - Viral infection [None]
  - Nausea [None]
  - Movement disorder [None]
  - Pneumonia [None]
  - Vomiting [None]
  - Back pain [None]
  - Acute kidney injury [None]
  - Drug withdrawal syndrome [None]
  - Pain [None]

NARRATIVE: CASE EVENT DATE: 20150818
